FAERS Safety Report 7978569-X (Version None)
Quarter: 2011Q4

REPORT INFORMATION
  Report Type: 
  Country: None (occurrence: None)
  Receive Date: 20111214
  Receipt Date: 20111206
  Transmission Date: 20120403
  Serious: Yes (Other)
  Sender: FDA-Public Use
  Company Number: US-BAYER-2011-075038

PATIENT
  Sex: Female
  Weight: 61 kg

DRUGS (5)
  1. YASMIN [Suspect]
     Indication: CONTRACEPTION
  2. INHALER [Concomitant]
     Dosage: UNK
     Dates: start: 20000101, end: 20100101
  3. YASMIN [Suspect]
     Indication: PREMENSTRUAL SYNDROME
  4. YAZ [Suspect]
     Indication: CONTRACEPTION
  5. YAZ [Suspect]
     Indication: PREMENSTRUAL SYNDROME

REACTIONS (3)
  - GALLBLADDER INJURY [None]
  - INJURY [None]
  - PAIN [None]
